FAERS Safety Report 8789583 (Version 6)
Quarter: 2013Q3

REPORT INFORMATION
  Report Type: Spontaneous
  Country: US (occurrence: None)
  Receive Date: 20120905
  Receipt Date: 20130827
  Transmission Date: 20140515
  Serious: Yes (Death, Hospitalization, Other)
  Sender: FDA-Public Use
  Company Number: 1208-462

PATIENT
  Age: 89 Year
  Sex: Male
  Weight: 58.97 kg

DRUGS (1)
  1. EYLEA [Suspect]
     Indication: AGE-RELATED MACULAR DEGENERATION
     Dosage: 3 MG, INTRAVITREAL
     Dates: start: 20120412

REACTIONS (4)
  - Cerebrovascular accident [None]
  - Chest pain [None]
  - Fatigue [None]
  - Unresponsive to stimuli [None]
